FAERS Safety Report 23071767 (Version 1)
Quarter: 2023Q4

REPORT INFORMATION
  Report Type: Report from Study
  Country: HU (occurrence: HU)
  Receive Date: 20231017
  Receipt Date: 20231017
  Transmission Date: 20240109
  Serious: Yes (Hospitalization, Other)
  Sender: FDA-Public Use
  Company Number: HU-ABBVIE-5451089

PATIENT
  Sex: Male

DRUGS (3)
  1. CARBIDOPA\LEVODOPA [Suspect]
     Active Substance: CARBIDOPA\LEVODOPA
     Indication: Parkinson^s disease
     Dosage: MORNING DOSE: 8.5 ML; CONTINUOUS DOSE: 3.0 ML/HOUR; EXTRA DOSE: 2.5 ML
     Route: 050
     Dates: start: 20140401
  2. CARBIDOPA\LEVODOPA [Suspect]
     Active Substance: CARBIDOPA\LEVODOPA
  3. BENSERAZIDE HYDROCHLORIDE\LEVODOPA [Concomitant]
     Active Substance: BENSERAZIDE HYDROCHLORIDE\LEVODOPA
     Indication: Parkinson^s disease
     Dosage: TIME INTERVAL: AS NECESSARY: 100 MG LEVODOPA, 25 MG BENSERAZIDE/ TABLET HALF TABLET AS REQUIRED
     Route: 048

REACTIONS (4)
  - Fall [Recovered/Resolved]
  - Stoma site inflammation [Recovered/Resolved]
  - Stoma complication [Recovered/Resolved]
  - Craniofacial fracture [Recovering/Resolving]

NARRATIVE: CASE EVENT DATE: 20180501
